FAERS Safety Report 13402660 (Version 4)
Quarter: 2018Q1

REPORT INFORMATION
  Report Type: Spontaneous
  Country: US (occurrence: US)
  Receive Date: 20170404
  Receipt Date: 20180105
  Transmission Date: 20180508
  Serious: No
  Sender: FDA-Public Use
  Company Number: US-ACTELION-A-US2017-150797

PATIENT
  Age: 57 Year
  Sex: Female
  Weight: 57.6 kg

DRUGS (13)
  1. PAROXETINE. [Concomitant]
     Active Substance: PAROXETINE
     Dosage: 60 MG, QD
     Route: 048
  2. SPIRONOLACTONE. [Concomitant]
     Active Substance: SPIRONOLACTONE
     Dosage: 100 MG, QD
     Route: 048
  3. METOLAZONE. [Concomitant]
     Active Substance: METOLAZONE
     Dosage: 2.5 MG, QD
     Route: 048
  4. VELETRI [Suspect]
     Active Substance: EPOPROSTENOL
     Indication: PULMONARY ARTERIAL HYPERTENSION
     Dosage: 31.75 NG/KG, PER MIN
     Route: 042
     Dates: start: 2013
  5. ALPRAZOLAM. [Concomitant]
     Active Substance: ALPRAZOLAM
     Dosage: 1 MG, QD
     Route: 048
  6. FUROSEMIDE. [Concomitant]
     Active Substance: FUROSEMIDE
     Dosage: 80 MG, BID
     Route: 048
  7. MORPHINE [Concomitant]
     Active Substance: MORPHINE
     Dosage: 15 MG, 1-2 TABLET S EVERY 6 HOURS
     Route: 048
  8. POTASSIUM CHLORIDE. [Concomitant]
     Active Substance: POTASSIUM CHLORIDE
     Dosage: 10 MEQ, QD 4 TABLETS
     Route: 048
  9. CIPROFLOXACIN. [Concomitant]
     Active Substance: CIPROFLOXACIN
     Dosage: 750 MG, 1 TABLET EVERY WEEK
     Route: 048
  10. TRIAMCINOLONE ACETONIDE. [Concomitant]
     Active Substance: TRIAMCINOLONE ACETONIDE
     Dosage: 0.1% 2 X DAY
     Route: 061
  11. FLUTICASONE. [Concomitant]
     Active Substance: FLUTICASONE
     Dosage: 50 MCG, QD 1-2 SPRAYS IN EACH NOTRIL
     Route: 045
  12. OMEPRAZOLE. [Concomitant]
     Active Substance: OMEPRAZOLE
     Dosage: 20 MG, QD 1 CAPSULE 2 TIMES A DAY FOR 4 WEEKS
     Route: 048
  13. DIGOXIN. [Concomitant]
     Active Substance: DIGOXIN
     Dosage: 125 MCG, QD
     Route: 048

REACTIONS (18)
  - Hypoaesthesia [Unknown]
  - Pain in extremity [Recovering/Resolving]
  - Tremor [Unknown]
  - Catheter management [Recovered/Resolved]
  - Pulmonary arterial pressure increased [Unknown]
  - Fatigue [Unknown]
  - Palpitations [Unknown]
  - Device leakage [Recovered/Resolved]
  - Dyspnoea [Recovering/Resolving]
  - Malaise [Unknown]
  - Drug dose omission [Unknown]
  - Myalgia [Unknown]
  - Asthenia [Unknown]
  - Pulmonary function test decreased [Unknown]
  - Dyspnoea exertional [Unknown]
  - Condition aggravated [Unknown]
  - Device breakage [Recovering/Resolving]
  - Chest pain [Unknown]

NARRATIVE: CASE EVENT DATE: 20170226
